FAERS Safety Report 4863891-6 (Version None)
Quarter: 2005Q4

REPORT INFORMATION
  Report Type: 
  Country: None (occurrence: None)
  Receive Date: 20051219
  Receipt Date: 20051202
  Transmission Date: 20060501
  Serious: Yes (Life-Threatening)
  Sender: FDA-Public Use
  Company Number: 2005S1010797

PATIENT
  Age: 49 Year
  Sex: Female

DRUGS (1)
  1. APOMORPHONE HYDROCHLORIDE [Suspect]
     Indication: PARKINSON'S DISEASE
     Dosage: 5.5 MG/HR; SC
     Route: 058
     Dates: start: 20051013

REACTIONS (1)
  - PLATELET COUNT INCREASED [None]
